FAERS Safety Report 16358066 (Version 2)
Quarter: 2020Q4

REPORT INFORMATION
  Report Type: Spontaneous
  Country: PL (occurrence: PL)
  Receive Date: 20190527
  Receipt Date: 20201119
  Transmission Date: 20210113
  Serious: Yes (Death, Hospitalization)
  Sender: FDA-Public Use
  Company Number: PL-BAUSCH-BL-2019-015246

PATIENT
  Age: 79 Year
  Sex: Male

DRUGS (2)
  1. XIFAXAN [Suspect]
     Active Substance: RIFAXIMIN
     Indication: DIARRHOEA
     Dosage: 2 TABLETS 3 TIMES A DAY
     Route: 048
     Dates: start: 20190429, end: 20190505
  2. XIFAXAN [Suspect]
     Active Substance: RIFAXIMIN
     Route: 048
     Dates: start: 2019

REACTIONS (1)
  - Clostridium difficile infection [Fatal]
